FAERS Safety Report 4281989-0 (Version None)
Quarter: 2004Q1

REPORT INFORMATION
  Report Type: 
  Country: None (occurrence: None)
  Receive Date: 20040128
  Receipt Date: 20040116
  Transmission Date: 20041129
  Serious: Yes (Hospitalization)
  Sender: FDA-Public Use
  Company Number: 04P-163-0247509-00

PATIENT
  Sex: Female

DRUGS (5)
  1. VICODIN [Suspect]
     Indication: SUICIDE ATTEMPT
     Dates: start: 20020715, end: 20020715
  2. METOCLOPRAMIDE [Suspect]
     Indication: GASTROOESOPHAGEAL REFLUX DISEASE
     Dates: start: 20011109, end: 20020715
  3. METOCLOPRAMIDE [Suspect]
     Indication: GASTROOESOPHAGEAL REFLUX DISEASE
     Dates: start: 20020808, end: 20021218
  4. REGLAN [Suspect]
     Indication: GASTROOESOPHAGEAL REFLUX DISEASE
     Dates: start: 20011119, end: 20020715
  5. REGLAN [Suspect]
     Indication: GASTROOESOPHAGEAL REFLUX DISEASE
     Dates: start: 20020808, end: 20021218

REACTIONS (2)
  - OVERDOSE [None]
  - SUICIDE ATTEMPT [None]
